FAERS Safety Report 8373903-3 (Version None)
Quarter: 2012Q2

REPORT INFORMATION
  Report Type: 
  Country: None (occurrence: None)
  Receive Date: 20120521
  Receipt Date: 20120507
  Transmission Date: 20120825
  Serious: No
  Sender: FDA-Public Use
  Company Number: US-ASTRAZENECA-2012SE13713

PATIENT
  Age: 65 Year
  Sex: Female
  Weight: 56.2 kg

DRUGS (5)
  1. LEXAPRO [Concomitant]
     Indication: ANXIETY
  2. FEMARA [Concomitant]
     Indication: BREAST CANCER
  3. NEXIUM [Suspect]
     Indication: HYPERCHLORHYDRIA
     Dosage: ONCE A DAY FOR 5 DAYS AND 2 AFTER
     Route: 048
     Dates: start: 20120217
  4. NEXIUM [Suspect]
     Indication: NAUSEA
     Dosage: ONCE A DAY FOR 5 DAYS AND 2 AFTER
     Route: 048
     Dates: start: 20120217
  5. LATANOPROST [Concomitant]
     Indication: GLAUCOMA

REACTIONS (3)
  - ADVERSE EVENT [None]
  - DYSPNOEA [None]
  - INTENTIONAL DRUG MISUSE [None]
